FAERS Safety Report 20471643 (Version 2)
Quarter: 2022Q2

REPORT INFORMATION
  Report Type: Spontaneous
  Country: US (occurrence: US)
  Receive Date: 20220214
  Receipt Date: 20220407
  Transmission Date: 20220720
  Serious: Yes (Hospitalization, Other)
  Sender: FDA-Public Use
  Company Number: US-SANOFI-00960692

PATIENT
  Age: 6 Year
  Sex: Female

DRUGS (1)
  1. CEREZYME [Suspect]
     Active Substance: IMIGLUCERASE
     Indication: Gaucher^s disease
     Dosage: UNK

REACTIONS (3)
  - Critical illness [Not Recovered/Not Resolved]
  - Endotracheal intubation [Unknown]
  - Mechanical ventilation [Unknown]
